FAERS Safety Report 12554135 (Version 5)
Quarter: 2017Q1

REPORT INFORMATION
  Report Type: Report from Study
  Country: JP (occurrence: JP)
  Receive Date: 20160713
  Receipt Date: 20170301
  Transmission Date: 20170428
  Serious: Yes (Life-Threatening)
  Sender: FDA-Public Use
  Company Number: JP-CELGENEUS-JPN-2016020315

PATIENT
  Age: 67 Year
  Sex: Female

DRUGS (33)
  1. LENADEX [Suspect]
     Active Substance: DEXAMETHASONE ACETATE
     Dosage: MG
     Route: 048
     Dates: start: 20150815, end: 20150815
  2. CANDESARTAN CILEXETIL. [Concomitant]
     Active Substance: CANDESARTAN CILEXETIL
     Indication: PROPHYLAXIS
     Dosage: MG
     Route: 048
     Dates: start: 20150821
  3. SELTOUCH [Concomitant]
     Active Substance: FELBINAC
     Indication: PRODUCT USED FOR UNKNOWN INDICATION
     Dosage: MG
     Route: 062
     Dates: start: 20150903
  4. POMALYST [Suspect]
     Active Substance: POMALIDOMIDE
     Dosage: MG
     Route: 048
     Dates: start: 20150718, end: 20150731
  5. FLUCONAZOLE. [Concomitant]
     Active Substance: FLUCONAZOLE
     Indication: PROPHYLAXIS
     Dosage: MG
     Route: 048
     Dates: start: 20150718
  6. SEREVENT DISKUS [Concomitant]
     Active Substance: SALMETEROL XINAFOATE
     Indication: PRODUCT USED FOR UNKNOWN INDICATION
     Route: 055
     Dates: start: 20150903
  7. POMALYST [Suspect]
     Active Substance: POMALIDOMIDE
     Dosage: MG
     Route: 048
     Dates: start: 20150801, end: 20150807
  8. REVLIMID [Suspect]
     Active Substance: LENALIDOMIDE
     Indication: PLASMA CELL MYELOMA
     Route: 048
     Dates: start: 20130910, end: 20140408
  9. BAYASPIRIN [Concomitant]
     Active Substance: ASPIRIN
     Indication: PROPHYLAXIS
     Dosage: MG
     Route: 048
     Dates: start: 20150718
  10. SLOW-K [Concomitant]
     Active Substance: POTASSIUM CHLORIDE
     Indication: PROPHYLAXIS
     Dosage: MG
     Route: 048
     Dates: start: 20150820, end: 20150820
  11. POMALYST [Suspect]
     Active Substance: POMALIDOMIDE
     Indication: PLASMA CELL MYELOMA
     Dosage: MG
     Route: 048
     Dates: start: 20150522, end: 20150611
  12. LENADEX [Suspect]
     Active Substance: DEXAMETHASONE ACETATE
     Dosage: MG
     Route: 048
     Dates: start: 20150915, end: 20150929
  13. ONEALFA [Concomitant]
     Active Substance: ALFACALCIDOL
     Indication: PROPHYLAXIS
     Dosage: MCG
     Route: 048
     Dates: start: 20150718
  14. CALCITRIOL. [Concomitant]
     Active Substance: CALCITRIOL
     Indication: PROPHYLAXIS
     Dosage: MCG
     Route: 048
     Dates: start: 20150718
  15. SLOW-K [Concomitant]
     Active Substance: POTASSIUM CHLORIDE
     Dosage: MG
     Route: 048
     Dates: start: 20150821, end: 20150821
  16. PREDNISOLONE. [Concomitant]
     Active Substance: PREDNISOLONE
     Indication: RHEUMATOID ARTHRITIS
     Dosage: MG
     Route: 048
     Dates: start: 20150822
  17. CARBOCISTEINE [Concomitant]
     Active Substance: CARBOCYSTEINE
     Dosage: MG
     Route: 048
     Dates: start: 20150823
  18. MIYA-BM [Concomitant]
     Active Substance: CLOSTRIDIUM BUTYRICUM SPORES STRAIN M-55
     Indication: PROPHYLAXIS
     Dosage: TAB
     Route: 048
     Dates: start: 20150823, end: 20150823
  19. MIYA-BM [Concomitant]
     Active Substance: CLOSTRIDIUM BUTYRICUM SPORES STRAIN M-55
     Dosage: TAB
     Route: 048
     Dates: start: 20150824
  20. POMALYST [Suspect]
     Active Substance: POMALIDOMIDE
     Dosage: MG
     Route: 048
     Dates: start: 20151013, end: 20151102
  21. LENADEX [Suspect]
     Active Substance: DEXAMETHASONE ACETATE
     Dosage: MG
     Route: 048
     Dates: start: 20150718, end: 20150801
  22. GASTER [Concomitant]
     Active Substance: FAMOTIDINE
     Indication: PROPHYLAXIS
     Dosage: MG
     Route: 048
     Dates: start: 20150718
  23. CALONAL [Concomitant]
     Active Substance: ACETAMINOPHEN
     Indication: PRODUCT USED FOR UNKNOWN INDICATION
     Dosage: MG
     Route: 048
     Dates: start: 20150903
  24. POMALYST [Suspect]
     Active Substance: POMALIDOMIDE
     Dosage: MG
     Route: 048
     Dates: start: 20150915, end: 20151005
  25. LENADEX [Suspect]
     Active Substance: DEXAMETHASONE ACETATE
     Dosage: MG
     Route: 048
     Dates: start: 20151013, end: 20151027
  26. LENADEX [Suspect]
     Active Substance: DEXAMETHASONE ACETATE
     Indication: PLASMA CELL MYELOMA
     Dosage: MG
     Route: 048
     Dates: start: 20150522, end: 20150612
  27. LENADEX [Suspect]
     Active Substance: DEXAMETHASONE ACETATE
     Dosage: MG
     Route: 048
     Dates: start: 20150619, end: 20150710
  28. ACICLOVIR [Concomitant]
     Active Substance: ACYCLOVIR
     Indication: PROPHYLAXIS
     Dosage: MG
     Route: 048
     Dates: start: 20150718
  29. CARBOCISTEINE [Concomitant]
     Active Substance: CARBOCYSTEINE
     Indication: PRODUCT USED FOR UNKNOWN INDICATION
     Dosage: MG
     Route: 048
     Dates: start: 20150822
  30. HIRUDOID [Concomitant]
     Active Substance: GLYCOSAMINOGLYCANS
     Indication: PRODUCT USED FOR UNKNOWN INDICATION
     Dosage: G
     Route: 062
     Dates: start: 20150903
  31. POMALYST [Suspect]
     Active Substance: POMALIDOMIDE
     Dosage: MG
     Route: 048
     Dates: start: 20150619, end: 20150710
  32. POMALYST [Suspect]
     Active Substance: POMALIDOMIDE
     Dosage: MG
     Route: 048
     Dates: start: 20150815, end: 20150820
  33. BACTRAMIN [Concomitant]
     Active Substance: SULFAMETHOXAZOLE\TRIMETHOPRIM
     Indication: PROPHYLAXIS
     Dosage: MG
     Route: 048
     Dates: start: 20150718

REACTIONS (3)
  - Pneumonia [Recovered/Resolved]
  - Asthenia [Recovered/Resolved]
  - Eczema [Recovered/Resolved]

NARRATIVE: CASE EVENT DATE: 20150525
